FAERS Safety Report 18446191 (Version 1)
Quarter: 2020Q4

REPORT INFORMATION
  Report Type: Spontaneous
  Country: US (occurrence: US)
  Receive Date: 20201028
  Receipt Date: 20201028
  Transmission Date: 20210114
  Serious: Yes (Other)
  Sender: FDA-Public Use
  Company Number: None

PATIENT
  Sex: Female

DRUGS (3)
  1. VITAMIN C [Concomitant]
     Active Substance: ASCORBIC ACID
  2. CALCIUM [Concomitant]
     Active Substance: CALCIUM
  3. LASO TEA [Suspect]
     Active Substance: HERBALS
     Indication: CONSTIPATION
     Route: 048

REACTIONS (1)
  - Substance use [None]

NARRATIVE: CASE EVENT DATE: 20200915
